FAERS Safety Report 19770546 (Version 1)
Quarter: 2021Q3

REPORT INFORMATION
  Report Type: Spontaneous
  Country: US (occurrence: US)
  Receive Date: 20210831
  Receipt Date: 20210831
  Transmission Date: 20211014
  Serious: Yes (Hospitalization)
  Sender: FDA-Public Use
  Company Number: None

PATIENT
  Age: 60 Year
  Sex: Male
  Weight: 90 kg

DRUGS (6)
  1. ALLOPURINOL 300MG [Concomitant]
     Active Substance: ALLOPURINOL
  2. ATORVASTATIN 20MG [Concomitant]
     Active Substance: ATORVASTATIN
  3. INLYTA [Suspect]
     Active Substance: AXITINIB
     Indication: RENAL CANCER
     Route: 048
     Dates: start: 20210121
  4. TYLENOL 650MG [Concomitant]
  5. LEVOTHYROXINE 75MCG [Concomitant]
     Active Substance: LEVOTHYROXINE
  6. OLMESARTAN 40MG [Concomitant]
     Active Substance: OLMESARTAN

REACTIONS (3)
  - Infection [None]
  - Oxygen saturation decreased [None]
  - Complication associated with device [None]

NARRATIVE: CASE EVENT DATE: 20210831
